FAERS Safety Report 23249659 (Version 1)
Quarter: 2023Q4

REPORT INFORMATION
  Report Type: Spontaneous
  Country: PL (occurrence: PL)
  Receive Date: 20231201
  Receipt Date: 20231201
  Transmission Date: 20240109
  Serious: Yes (Hospitalization, Other)
  Sender: FDA-Public Use
  Company Number: PL-ROCHE-3394092

PATIENT
  Age: 60 Year

DRUGS (6)
  1. AZATHIOPRINE [Suspect]
     Active Substance: AZATHIOPRINE
     Indication: Immune thrombocytopenia
     Dosage: INITIAL DOSE
     Route: 065
     Dates: start: 20180430
  2. AZATHIOPRINE [Suspect]
     Active Substance: AZATHIOPRINE
     Dosage: INCREASED DOSE
     Route: 065
     Dates: start: 20180502
  3. MYCOPHENOLATE MOFETIL [Suspect]
     Active Substance: MYCOPHENOLATE MOFETIL
     Indication: Immune thrombocytopenia
     Dosage: 1000.000MG
     Route: 065
  4. PREDNISONE [Suspect]
     Active Substance: PREDNISONE
     Indication: Immune thrombocytopenia
     Dosage: 120.000MG QD
     Route: 065
  5. RITUXIMAB [Suspect]
     Active Substance: RITUXIMAB
     Indication: Immune thrombocytopenia
     Dosage: AT DOSE OF 750MG, 4 ADMINISTRATIONS
     Route: 042
  6. ELTROMBOPAG [Concomitant]
     Active Substance: ELTROMBOPAG
     Indication: Product use in unapproved indication
     Dosage: AT A DOSE OF 50 MG/DAY AS PART OF THE ITP, 2 WEEKS LATER, THE DOSE OF THIS DRUG WAS INCREASED TO 75
     Route: 065

REACTIONS (6)
  - Urinary tract infection [Recovered/Resolved]
  - COVID-19 [Recovered/Resolved]
  - Pseudomonas infection [Recovered/Resolved]
  - Peritonitis [Recovered/Resolved]
  - Abscess [Recovered/Resolved]
  - Drug ineffective [Unknown]

NARRATIVE: CASE EVENT DATE: 20201001
